FAERS Safety Report 12285051 (Version 1)
Quarter: 2016Q2

REPORT INFORMATION
  Report Type: Report from Study
  Country: DE (occurrence: DE)
  Receive Date: 20160420
  Receipt Date: 20160420
  Transmission Date: 20160815
  Serious: Yes (Other)
  Sender: FDA-Public Use
  Company Number: DE-ABBVIE-16K-062-1605425-00

PATIENT
  Age: 48 Year
  Sex: Female

DRUGS (1)
  1. HUMIRA [Suspect]
     Active Substance: ADALIMUMAB
     Indication: PSORIASIS
     Route: 058
     Dates: start: 20140226

REACTIONS (3)
  - Arthroscopy [Recovered/Resolved]
  - Nasopharyngitis [Recovered/Resolved]
  - Tonsillectomy [Not Recovered/Not Resolved]

NARRATIVE: CASE EVENT DATE: 20141219
